FAERS Safety Report 12838198 (Version 1)
Quarter: 2016Q4

REPORT INFORMATION
  Report Type: Spontaneous
  Country: IT (occurrence: IT)
  Receive Date: 20161012
  Receipt Date: 20161012
  Transmission Date: 20170207
  Serious: Yes (Other)
  Sender: FDA-Public Use
  Company Number: IT-ACCORD-044766

PATIENT
  Age: 73 Year
  Sex: Male

DRUGS (1)
  1. QUETIAPINE. [Suspect]
     Active Substance: QUETIAPINE
     Indication: PSYCHOTIC DISORDER
     Dosage: UP TO 200

REACTIONS (7)
  - Tremor [Unknown]
  - Extrapyramidal disorder [Unknown]
  - Gait disturbance [Unknown]
  - Bradykinesia [Unknown]
  - Hypertonia [Unknown]
  - Dyskinesia [Unknown]
  - Drug ineffective [Unknown]
